FAERS Safety Report 9176095 (Version 2)
Quarter: 2013Q2

REPORT INFORMATION
  Report Type: Spontaneous
  Country: US (occurrence: US)
  Receive Date: 20130320
  Receipt Date: 20130416
  Transmission Date: 20140414
  Serious: Yes (Disabling, Other)
  Sender: FDA-Public Use
  Company Number: US-009507513-1303USA007909

PATIENT
  Age: 28 Year
  Sex: Female

DRUGS (3)
  1. PRINIVIL [Suspect]
     Dosage: UNK
     Route: 048
     Dates: start: 20100930, end: 20120601
  2. ALDACTONE TABLETS [Concomitant]
     Dosage: 50 MG, UNK
     Route: 048
  3. GLUCOTROL [Concomitant]
     Dosage: 5 MG, UNK
     Route: 048

REACTIONS (6)
  - Adverse event [Unknown]
  - Drug hypersensitivity [Unknown]
  - Dry mouth [Unknown]
  - Cough [Unknown]
  - Drug hypersensitivity [Unknown]
  - Hypersensitivity [Unknown]
